FAERS Safety Report 9184176 (Version 2)
Quarter: 2013Q2

REPORT INFORMATION
  Report Type: Report from Study
  Country: MX (occurrence: MX)
  Receive Date: 20130322
  Receipt Date: 20130606
  Transmission Date: 20140414
  Serious: Yes (Hospitalization)
  Sender: FDA-Public Use
  Company Number: MX-PFIZER INC-2012026620

PATIENT
  Age: 32 Year
  Sex: Male
  Weight: 77 kg

DRUGS (15)
  1. FLUOROURACIL [Suspect]
     Indication: HEAD AND NECK CANCER
     Dosage: 1000 MG/M2, CYCLIC, ON DAY ONE TO FOUR
     Route: 042
     Dates: start: 20111205
  2. FLUOROURACIL [Suspect]
     Indication: TONGUE NEOPLASM
  3. CISPLATIN [Suspect]
     Indication: HEAD AND NECK CANCER
     Dosage: 100 MG/M2, CYCLIC, ON DAY ONE
     Route: 042
     Dates: start: 20111205
  4. CISPLATIN [Suspect]
     Indication: TONGUE NEOPLASM
  5. BLINDED THERAPY [Suspect]
     Indication: HEAD AND NECK CANCER
     Dosage: LOADING DOSE, ON DAY ONE OF CYCLE 1
     Dates: start: 20111205, end: 20111205
  6. BLINDED THERAPY [Suspect]
     Indication: TONGUE NEOPLASM
     Dosage: WEEKLY
     Dates: start: 20111213
  7. MORPHINE [Concomitant]
     Dosage: UNK
     Dates: start: 20111230, end: 20120115
  8. PARACETAMOL [Concomitant]
     Dosage: UNK
     Dates: start: 20111230, end: 20120115
  9. DEXKETOPROFEN [Concomitant]
     Dosage: UNK
     Dates: start: 20111230, end: 20120115
  10. CLINDAMYCIN HYDROCHLORIDE [Concomitant]
     Dosage: UNK
     Dates: start: 20111230, end: 20120114
  11. NIMESULIDE [Concomitant]
     Dosage: UNK
     Dates: start: 20111230, end: 20120115
  12. CEFTRIAXONE SODIUM [Concomitant]
     Dosage: UNK
     Dates: start: 20111230, end: 20120114
  13. TRANSTEC [Concomitant]
     Dosage: UNK
     Dates: start: 20111231, end: 20120115
  14. MORPHINE SULFATE PENTAHYDRATE [Concomitant]
     Dosage: UNK
     Route: 048
     Dates: start: 20111231, end: 20120115
  15. BUPRENORPHINE [Concomitant]
     Dosage: PATCH

REACTIONS (2)
  - Neck pain [Recovered/Resolved]
  - Tumour necrosis [Not Recovered/Not Resolved]
